FAERS Safety Report 15123577 (Version 2)
Quarter: 2018Q4

REPORT INFORMATION
  Report Type: Spontaneous
  Country: JP (occurrence: JP)
  Receive Date: 20180710
  Receipt Date: 20181115
  Transmission Date: 20190204
  Serious: Yes (Life-Threatening, Hospitalization)
  Sender: FDA-Public Use
  Company Number: JP-SUN PHARMACEUTICAL INDUSTRIES LTD-2018R1-177618

PATIENT
  Age: 66 Year
  Sex: Female

DRUGS (3)
  1. BUCILLAMINE [Concomitant]
     Active Substance: BUCILLAMINE
     Indication: RHEUMATOID ARTHRITIS
     Dosage: UNK
     Route: 065
  2. METHOTREXATE. [Suspect]
     Active Substance: METHOTREXATE
     Indication: RHEUMATOID ARTHRITIS
     Dosage: 6 MG, /WEEK
     Route: 065
  3. METHOTREXATE. [Suspect]
     Active Substance: METHOTREXATE
     Dosage: 12 MG, /WEEK
     Route: 065

REACTIONS (5)
  - Diffuse large B-cell lymphoma [Recovering/Resolving]
  - Acute respiratory failure [Recovering/Resolving]
  - Intestinal perforation [Recovering/Resolving]
  - Peritonitis [Recovering/Resolving]
  - Interstitial lung disease [Recovering/Resolving]
